FAERS Safety Report 7234902-8 (Version None)
Quarter: 2011Q1

REPORT INFORMATION
  Report Type: 
  Country: None (occurrence: None)
  Receive Date: 20110120
  Receipt Date: 20110112
  Transmission Date: 20110831
  Serious: Yes (Hospitalization)
  Sender: FDA-Public Use
  Company Number: CA-SHIRE-PNT2-2011-00001

PATIENT
  Sex: Female
  Weight: 68.5 kg

DRUGS (8)
  1. SYNTHROID [Concomitant]
     Indication: HYPOTHYROIDISM
     Dosage: UNK
     Dates: start: 20030101
  2. XYLOCAINE [Concomitant]
     Indication: PROCTALGIA
     Dosage: UNK
     Dates: start: 20101130, end: 20101204
  3. MULTIVITAMIN                       /00097801/ [Concomitant]
     Indication: SUPPLEMENTATION THERAPY
     Dosage: UNK
     Dates: start: 20030101
  4. ADALAT [Concomitant]
     Indication: ANAL FISSURE
     Dosage: UNK
     Dates: start: 20101130
  5. DALACIN                            /00166002/ [Concomitant]
     Indication: ABSCESS
     Dosage: UNK
     Dates: start: 20101227
  6. MESALAMINE [Suspect]
     Indication: DIVERTICULITIS
     Dosage: 4.8 G, 1X/DAY:QD
     Dates: start: 20090414, end: 20101229
  7. PERCOCET [Concomitant]
     Indication: ABSCESS
     Dosage: UNK
     Dates: start: 20101227
  8. CIPRO [Concomitant]
     Indication: ABSCESS
     Dosage: UNK
     Dates: start: 20101226

REACTIONS (2)
  - AGRANULOCYTOSIS [None]
  - ABSCESS [None]
